FAERS Safety Report 8134832-3 (Version None)
Quarter: 2012Q1

REPORT INFORMATION
  Report Type: 
  Country: None (occurrence: None)
  Receive Date: 20120209
  Receipt Date: 20120125
  Transmission Date: 20120608
  Serious: Yes (Life-Threatening, Hospitalization)
  Sender: FDA-Public Use
  Company Number: DE-DEXPHARM-20120023

PATIENT
  Age: 54 Year
  Sex: Female

DRUGS (2)
  1. CHLORHEXIDINE (RINSE) [Suspect]
  2. SANDIMMUNE [Suspect]
     Indication: DERMATITIS ATOPIC
     Dosage: 50 MG, 1 IN 1 D, ORAL
     Route: 048
     Dates: start: 20100601, end: 20110701

REACTIONS (3)
  - CIRCULATORY COLLAPSE [None]
  - ASPHYXIA [None]
  - PETIT MAL EPILEPSY [None]
